FAERS Safety Report 5511565-0 (Version None)
Quarter: 2007Q4

REPORT INFORMATION
  Report Type: 
  Country: None (occurrence: None)
  Receive Date: 20071109
  Receipt Date: 20071030
  Transmission Date: 20080405
  Serious: Yes (Congenital Anomaly, Other)
  Sender: FDA-Public Use
  Company Number: US-JNJFOC-20071100103

PATIENT

DRUGS (1)
  1. RETIN-A [Suspect]
     Indication: ACNE

REACTIONS (1)
  - HYDROCEPHALUS [None]
